FAERS Safety Report 20719833 (Version 2)
Quarter: 2022Q3

REPORT INFORMATION
  Report Type: Report from Study
  Country: US (occurrence: US)
  Receive Date: 20220418
  Receipt Date: 20220623
  Transmission Date: 20221026
  Serious: Yes (Other)
  Sender: FDA-Public Use
  Company Number: US-NOVARTISPH-NVSC2022US085009

PATIENT
  Sex: Female

DRUGS (2)
  1. COSENTYX [Suspect]
     Active Substance: SECUKINUMAB
     Indication: Psoriasis
     Dosage: 300 MG, QMO
     Route: 058
  2. COSENTYX [Suspect]
     Active Substance: SECUKINUMAB
     Dosage: UNK, (DOSE RECEIVED)
     Route: 058

REACTIONS (5)
  - COVID-19 pneumonia [Recovered/Resolved]
  - Pyrexia [Unknown]
  - Arthralgia [Recovering/Resolving]
  - Alopecia [Unknown]
  - Psoriasis [Unknown]
